FAERS Safety Report 12059470 (Version 1)
Quarter: 2016Q1

REPORT INFORMATION
  Report Type: Other
  Country: TR (occurrence: TR)
  Receive Date: 20160210
  Receipt Date: 20160210
  Transmission Date: 20160526
  Serious: Yes (Hospitalization)
  Sender: FDA-Public Use
  Company Number: TR-LUPIN PHARMACEUTICALS INC.-2016-00601

PATIENT
  Age: 55 Year
  Sex: Male

DRUGS (1)
  1. METFORMIN [Suspect]
     Active Substance: METFORMIN HYDROCHLORIDE
     Indication: PRODUCT USED FOR UNKNOWN INDICATION
     Dosage: 50 TABLETS OF METFORMIN
     Route: 048

REACTIONS (5)
  - Lactic acidosis [Unknown]
  - Overdose [Unknown]
  - Acute kidney injury [Unknown]
  - Suicide attempt [Unknown]
  - Myocardial ischaemia [Unknown]
